FAERS Safety Report 25325351 (Version 1)
Quarter: 2025Q2

REPORT INFORMATION
  Report Type: Spontaneous
  Country: IT (occurrence: IT)
  Receive Date: 20250516
  Receipt Date: 20250516
  Transmission Date: 20250716
  Serious: Yes (Life-Threatening, Hospitalization)
  Sender: BAUSCH AND LOMB
  Company Number: IT-MLMSERVICE-20250507-PI497941-00033-1

PATIENT
  Age: 54 Year
  Sex: Male

DRUGS (3)
  1. DICLOFENAC [Suspect]
     Active Substance: DICLOFENAC
     Indication: Osteoarthritis
     Route: 065
     Dates: start: 202206, end: 202306
  2. ASPIRIN [Suspect]
     Active Substance: ASPIRIN
     Indication: Osteoarthritis
     Dosage: COMPOUND ASPIRIN TABLETS, 440 MG DAILY
     Route: 065
     Dates: start: 1999, end: 2019
  3. ASPIRIN [Suspect]
     Active Substance: ASPIRIN
     Dosage: COMPOUND ASPIRIN TABLETS, INCREASED DOSES UP TO 1320 MG OF ASPIRIN PER DAY.
     Route: 065
     Dates: start: 2019, end: 202206

REACTIONS (2)
  - Intestinal diaphragm disease [Recovering/Resolving]
  - Gastrointestinal toxicity [Recovering/Resolving]

NARRATIVE: CASE EVENT DATE: 20190101
